FAERS Safety Report 6291242-1 (Version None)
Quarter: 2009Q3

REPORT INFORMATION
  Report Type: 
  Country: None (occurrence: None)
  Receive Date: 20090729
  Receipt Date: 20090729
  Transmission Date: 20100115
  Serious: Yes (Hospitalization)
  Sender: FDA-Public Use
  Company Number: None

PATIENT
  Age: 68 Year
  Sex: Female

DRUGS (15)
  1. LEVOFLOXACIN [Suspect]
     Indication: BACTERAEMIA
     Dosage: 500MG DAILY IV BOLUS
     Route: 040
     Dates: start: 20080703, end: 20080707
  2. LEVOFLOXACIN [Suspect]
     Indication: URINARY TRACT INFECTION
     Dosage: 500MG DAILY IV BOLUS
     Route: 040
     Dates: start: 20080703, end: 20080707
  3. ZOLPIDIEM [Concomitant]
  4. ATORVASTATIN [Concomitant]
  5. PROPOXYPHENE HCL AND ACETAMINOPHEN [Concomitant]
  6. POTASSIUM CHLORIDE [Concomitant]
  7. FEXOFENADINE [Concomitant]
  8. FLUTICASONE [Concomitant]
  9. ESOMEPRAZOLE [Concomitant]
  10. ZETIA [Concomitant]
  11. LEVOTHYROXINE SODIUM [Concomitant]
  12. ALBUTEROL [Concomitant]
  13. VALSARTAN [Concomitant]
  14. ACETAMINOPHEN [Concomitant]
  15. QVAR 40 [Concomitant]

REACTIONS (1)
  - HYPERSENSITIVITY [None]
